FAERS Safety Report 9692548 (Version 6)
Quarter: 2014Q1

REPORT INFORMATION
  Report Type: Report from Study
  Country: JP (occurrence: JP)
  Receive Date: 20131118
  Receipt Date: 20140328
  Transmission Date: 20141002
  Serious: Yes (Death, Life-Threatening, Hospitalization)
  Sender: FDA-Public Use
  Company Number: JP-BAYER-2013-137135

PATIENT
  Age: 74 Year
  Sex: Female
  Weight: 52 kg

DRUGS (3)
  1. STIVARGA [Suspect]
     Indication: COLON CANCER
     Dosage: 160 MG, QD ON FOR 2 WEEKS
     Route: 048
     Dates: start: 20131021, end: 20131102
  2. MICARDIS [Suspect]
     Dosage: DAILY DOSE 40 MG
     Route: 048
     Dates: end: 20131108
  3. UREPEARL [Concomitant]
     Indication: DRUG TOXICITY PROPHYLAXIS
     Dosage: UNK
     Route: 061
     Dates: start: 20131015, end: 20131108

REACTIONS (3)
  - Cardiac failure [Not Recovered/Not Resolved]
  - Hepatic function abnormal [None]
  - Infection [Fatal]
